FAERS Safety Report 6531187-2 (Version None)
Quarter: 2010Q1

REPORT INFORMATION
  Report Type: 
  Country: None (occurrence: None)
  Receive Date: 20100108
  Receipt Date: 20100104
  Transmission Date: 20100710
  Serious: Yes (Other)
  Sender: FDA-Public Use
  Company Number: GB-ROCHE-677781

PATIENT
  Sex: Female

DRUGS (1)
  1. ROACCUTANE [Suspect]
     Indication: ACNE
     Route: 065

REACTIONS (1)
  - UVEITIS [None]
